FAERS Safety Report 10028919 (Version 1)
Quarter: 2014Q1

REPORT INFORMATION
  Report Type: Spontaneous
  Country: BR (occurrence: BR)
  Receive Date: 20140321
  Receipt Date: 20140321
  Transmission Date: 20141002
  Serious: Yes (Hospitalization, Other)
  Sender: FDA-Public Use
  Company Number: BR-ABBVIE-14P-020-1212426-00

PATIENT
  Age: 65 Year
  Sex: Male
  Weight: 93 kg

DRUGS (6)
  1. HUMIRA [Suspect]
     Indication: ANKYLOSING SPONDYLITIS
     Route: 058
     Dates: start: 200910, end: 20121115
  2. ARADOIS [Concomitant]
     Indication: HYPERTENSION
     Dosage: FORM STRENGTH: 50MG + 12,5MG
     Route: 048
     Dates: start: 2011
  3. SECOTEX [Concomitant]
     Indication: PROSTATIC DISORDER
     Route: 048
     Dates: start: 2005
  4. DILTIAZEM HYDROCHLORIDE [Concomitant]
     Indication: CARDIOMEGALY
     Route: 048
     Dates: start: 2004
  5. POTASSIUM CITRATE [Concomitant]
     Indication: NEPHROLITHIASIS
     Route: 048
     Dates: start: 2004
  6. CLONAZEPAM [Concomitant]
     Indication: SLEEP DISORDER THERAPY
     Route: 048
     Dates: start: 2006

REACTIONS (12)
  - Inguinal hernia [Recovering/Resolving]
  - Post procedural infection [Recovered/Resolved]
  - Nosocomial infection [Recovered/Resolved]
  - Pain [Unknown]
  - Pyrexia [Unknown]
  - Immunodeficiency [Unknown]
  - Condition aggravated [Unknown]
  - Pyrexia [Unknown]
  - Abdominal pain [Not Recovered/Not Resolved]
  - Incision site pain [Not Recovered/Not Resolved]
  - Abdominal adhesions [Unknown]
  - Pain [Not Recovered/Not Resolved]
